FAERS Safety Report 14936998 (Version 3)
Quarter: 2018Q3

REPORT INFORMATION
  Report Type: Report from Study
  Country: ES (occurrence: ES)
  Receive Date: 20180525
  Receipt Date: 20180725
  Transmission Date: 20181010
  Serious: Yes (Hospitalization)
  Sender: FDA-Public Use
  Company Number: ES-TEVA-820649ROM

PATIENT
  Age: 67 Year
  Sex: Female

DRUGS (6)
  1. METFORMINA [Concomitant]
     Active Substance: METFORMIN HYDROCHLORIDE
     Indication: DIABETES MELLITUS
     Route: 048
     Dates: start: 20150811
  2. ADVAGRAF [Suspect]
     Active Substance: TACROLIMUS
     Indication: RENAL TRANSPLANT
     Dosage: 3.5 MILLIGRAM DAILY; DOSAGE UNIT FREQUENCY: 3.5 MG?MILLIGRAMS FREQUENCY UNIT: 1 DAY
     Route: 048
     Dates: start: 201203
  3. PREDNISONA [Concomitant]
     Active Substance: PREDNISONE
     Indication: CONTINUOUS HAEMODIAFILTRATION
     Dosage: 5 MILLIGRAM DAILY; DOSAGE UNIT FREQUENCY: 5 MG?MILLIGRAMS FREQUENCY UNIT: 1 DAY
     Route: 048
     Dates: start: 201203
  4. CELLCEPT [Suspect]
     Active Substance: MYCOPHENOLATE MOFETIL\MYCOPHENOLATE MOFETIL HYDROCHLORIDE
     Indication: RENAL TRANSPLANT
     Route: 048
     Dates: start: 201203
  5. CRESTOR [Concomitant]
     Active Substance: ROSUVASTATIN CALCIUM
     Indication: DYSLIPIDAEMIA
     Route: 048
     Dates: start: 20120405
  6. VALSARTAN W/HYDROCHLOROTHIAZIDE [Suspect]
     Active Substance: HYDROCHLOROTHIAZIDE\VALSARTAN
     Indication: ESSENTIAL HYPERTENSION
     Dosage: 80 MILLIGRAM DAILY;
     Route: 048
     Dates: start: 201301, end: 20160314

REACTIONS (1)
  - Acute kidney injury [Recovered/Resolved]

NARRATIVE: CASE EVENT DATE: 20160229
